FAERS Safety Report 15892159 (Version 1)
Quarter: 2019Q1

REPORT INFORMATION
  Report Type: Report from Study
  Country: US (occurrence: US)
  Receive Date: 20190130
  Receipt Date: 20190130
  Transmission Date: 20190417
  Serious: No
  Sender: FDA-Public Use
  Company Number: US-EXELIXIS-CABO-18015038

PATIENT
  Sex: Female

DRUGS (11)
  1. COMETRIQ [Suspect]
     Active Substance: CABOZANTINIB S-MALATE
     Indication: THYROID CANCER
     Dosage: 140 MG, QD
     Route: 048
     Dates: start: 20180501
  2. SYNTHROID [Concomitant]
     Active Substance: LEVOTHYROXINE SODIUM
     Dosage: UNK
  3. LIDEX [Concomitant]
     Active Substance: FLUOCINONIDE
     Dosage: UNK
  4. THERAGRAN-M [Concomitant]
     Active Substance: VITAMINS
     Dosage: UNK
  5. CALCIUM PLUS VITAMIN D3 [Concomitant]
     Dosage: UNK
  6. OMEGA 3 [Concomitant]
     Active Substance: OMEGA-3 FATTY ACIDS
     Dosage: UNK
  7. CYTOMEL [Concomitant]
     Active Substance: LIOTHYRONINE SODIUM
     Dosage: UNK
  8. CYANOCOBALAMIN. [Concomitant]
     Active Substance: CYANOCOBALAMIN
     Dosage: UNK
  9. COLACE [Concomitant]
     Active Substance: DOCUSATE SODIUM
     Dosage: UNK
  10. PRILOSEC [Concomitant]
     Active Substance: OMEPRAZOLE MAGNESIUM
     Dosage: UNK
  11. CLINDAMYCIN. [Concomitant]
     Active Substance: CLINDAMYCIN
     Dosage: UNK

REACTIONS (6)
  - Gastric disorder [Unknown]
  - Nausea [Unknown]
  - Vomiting [Unknown]
  - Decreased appetite [Recovering/Resolving]
  - Weight decreased [Unknown]
  - Skin discolouration [Unknown]

NARRATIVE: CASE EVENT DATE: 2018
